FAERS Safety Report 7256113-2 (Version None)
Quarter: 2011Q1

REPORT INFORMATION
  Report Type: 
  Country: None (occurrence: None)
  Receive Date: 20110129
  Receipt Date: 20100508
  Transmission Date: 20110831
  Serious: No
  Sender: FDA-Public Use
  Company Number: US-ABBOTT-10P-163-0643277-00

PATIENT
  Age: 24 Year
  Sex: Female

DRUGS (4)
  1. HUMIRA [Suspect]
     Indication: CROHN'S DISEASE
     Dates: start: 20100501
  2. PREDNISONE [Concomitant]
     Indication: CROHN'S DISEASE
  3. PRENATAL VITAMINS [Concomitant]
     Indication: ROUTINE HEALTH MAINTENANCE
     Dosage: DAILY
  4. SLULSETINE [Concomitant]
     Indication: PREMENSTRUAL SYNDROME

REACTIONS (6)
  - CHEST DISCOMFORT [None]
  - HEADACHE [None]
  - UPPER-AIRWAY COUGH SYNDROME [None]
  - COUGH [None]
  - NAUSEA [None]
  - PARANASAL SINUS HYPERSECRETION [None]
